FAERS Safety Report 14295015 (Version 1)
Quarter: 2017Q4

REPORT INFORMATION
  Report Type: Spontaneous
  Country: US (occurrence: US)
  Receive Date: 20171218
  Receipt Date: 20171218
  Transmission Date: 20180321
  Serious: Yes (Hospitalization, Other)
  Sender: FDA-Public Use
  Company Number: US-BRISTOL-MYERS SQUIBB COMPANY-BMS-2017-113376

PATIENT
  Age: 68 Year
  Sex: Female
  Weight: 77.9 kg

DRUGS (1)
  1. ELIQUIS [Suspect]
     Active Substance: APIXABAN
     Indication: PULMONARY EMBOLISM
     Dosage: DAILY
     Route: 065

REACTIONS (6)
  - Atelectasis [Unknown]
  - Osteolysis [Unknown]
  - Malignant neoplasm progression [Unknown]
  - Ecchymosis [Unknown]
  - Fall [Unknown]
  - Pulmonary embolism [Unknown]
